FAERS Safety Report 25230057 (Version 1)
Quarter: 2025Q2

REPORT INFORMATION
  Report Type: Spontaneous
  Country: US (occurrence: None)
  Receive Date: 20250422
  Receipt Date: 20250422
  Transmission Date: 20250716
  Serious: Yes (Hospitalization)
  Sender: FDA-CTU
  Company Number: None

PATIENT
  Age: 73 Year
  Sex: Male
  Weight: 89.3 kg

DRUGS (1)
  1. CIPROFLOXACIN [Suspect]
     Active Substance: CIPROFLOXACIN
     Dates: start: 20250418, end: 20250419

REACTIONS (5)
  - Anxiety [None]
  - Nausea [None]
  - Dyspnoea [None]
  - Orthopnoea [None]
  - Atrial fibrillation [None]

NARRATIVE: CASE EVENT DATE: 20250418
